FAERS Safety Report 5707104-1 (Version None)
Quarter: 2008Q2

REPORT INFORMATION
  Report Type: 
  Country: None (occurrence: None)
  Receive Date: 20080416
  Receipt Date: 20080404
  Transmission Date: 20081010
  Serious: No
  Sender: FDA-Public Use
  Company Number: US-ELI_LILLY_AND_COMPANY-US200802002242

PATIENT
  Age: 81 Year
  Sex: Female
  Weight: 70.295 kg

DRUGS (7)
  1. FORTEO [Suspect]
     Indication: OSTEOPOROSIS
     Dosage: 20 UG, DAILY (1/D)
     Dates: start: 20080125, end: 20080101
  2. TOPROL-XL [Concomitant]
     Dosage: 75 MG, DAILY (1/D)
  3. CELEBREX [Concomitant]
     Dosage: 200 MG, DAILY (1/D)
  4. MAXZIDE [Concomitant]
     Dosage: 25 UNK, DAILY (1/D)
     Route: 048
  5. LOMOTIL [Concomitant]
     Indication: DIARRHOEA
     Dosage: UNK, AS NEEDED
  6. PERCOCET [Concomitant]
  7. LYRICA [Concomitant]

REACTIONS (8)
  - ARTHRALGIA [None]
  - DIZZINESS [None]
  - FATIGUE [None]
  - LIMB DISCOMFORT [None]
  - MYALGIA [None]
  - NAUSEA [None]
  - SOMNOLENCE [None]
  - TREMOR [None]
